FAERS Safety Report 5242644-3 (Version None)
Quarter: 2007Q1

REPORT INFORMATION
  Report Type: 
  Country: None (occurrence: None)
  Receive Date: 20070221
  Receipt Date: 20070214
  Transmission Date: 20070707
  Serious: Yes (Other)
  Sender: FDA-Public Use
  Company Number: JP-ROCHE-481811

PATIENT
  Age: 74 Year
  Sex: Female

DRUGS (4)
  1. TICLOPIDINE HCL [Suspect]
     Indication: ANGINA PECTORIS
     Dosage: INDICATIONS ALSO REPORTED AS PERCUTANEOUS CORONARY INTERVENTION AND STENT PLACEMENT.
     Route: 048
     Dates: start: 20061012, end: 20061106
  2. ASPIRIN [Suspect]
     Indication: ANGINA PECTORIS
     Route: 065
     Dates: start: 20061012, end: 20061114
  3. ANPLAG [Suspect]
     Indication: ANGINA PECTORIS
     Route: 065
     Dates: start: 20061012, end: 20061114
  4. SELBEX [Concomitant]

REACTIONS (4)
  - HEPATIC FUNCTION ABNORMAL [None]
  - JAUNDICE [None]
  - MELAENA [None]
  - OCCULT BLOOD [None]
